FAERS Safety Report 23886673 (Version 1)
Quarter: 2024Q2

REPORT INFORMATION
  Report Type: Spontaneous
  Country: ES (occurrence: ES)
  Receive Date: 20240522
  Receipt Date: 20240522
  Transmission Date: 20240716
  Serious: Yes (Other)
  Sender: FDA-Public Use
  Company Number: ES-STRIDES ARCOLAB LIMITED-2024SP005911

PATIENT
  Age: 36 Year
  Sex: Female

DRUGS (1)
  1. PREDNISOLONE [Suspect]
     Active Substance: PREDNISOLONE
     Indication: Retroperitoneal fibrosis
     Dosage: UNK
     Route: 048

REACTIONS (3)
  - Therapy non-responder [Unknown]
  - Intentional product misuse [Unknown]
  - Treatment noncompliance [Unknown]
